FAERS Safety Report 8623113-7 (Version None)
Quarter: 2012Q3

REPORT INFORMATION
  Report Type: 
  Country: None (occurrence: None)
  Receive Date: 20120827
  Receipt Date: 20120823
  Transmission Date: 20120928
  Serious: Yes (Other)
  Sender: FDA-Public Use
  Company Number: JP-009507513-2012SP019234

PATIENT

DRUGS (6)
  1. LOXOPROFEN [Concomitant]
     Indication: PYREXIA
     Dosage: FORMULATION:POR, DOSE: 60 MG/DAY AS NEEDED
     Route: 048
     Dates: start: 20120223, end: 20120316
  2. ALLOPURINOL [Concomitant]
     Indication: BLOOD URIC ACID INCREASED
     Dosage: 200 MG, QD
     Route: 048
     Dates: start: 20120306, end: 20120316
  3. REBETOL [Suspect]
     Indication: HEPATITIS C
     Dosage: CUMULATIVE DOSE: 20000 MG
     Route: 048
     Dates: start: 20120221, end: 20120313
  4. TELAVIC [Suspect]
     Indication: HEPATITIS C
     Dosage: CUMULATIVE DOSE: 56250 MG
     Route: 048
     Dates: start: 20120221, end: 20120316
  5. PEG-INTRON [Suspect]
     Indication: HEPATITIS C
     Dosage: 1.5 MICROGRAM PER KILOGRAM, QW
     Route: 051
     Dates: start: 20120221, end: 20120316
  6. REBETOL [Suspect]
     Dosage: CUMULATIVE DOSE: 20000 MG
     Route: 048
     Dates: start: 20120313, end: 20120316

REACTIONS (1)
  - PSYCHIATRIC SYMPTOM [None]
